FAERS Safety Report 7564715-9 (Version None)
Quarter: 2011Q2

REPORT INFORMATION
  Report Type: 
  Country: None (occurrence: None)
  Receive Date: 20110622
  Receipt Date: 20101221
  Transmission Date: 20111010
  Serious: Yes (Other)
  Sender: FDA-Public Use
  Company Number: US-MYLANLABS-2010S1017386

PATIENT
  Age: 40 Year
  Sex: Male

DRUGS (3)
  1. CLOZAPINE [Suspect]
     Dates: end: 20100918
  2. LITHIUM [Concomitant]
  3. SEROQUEL [Concomitant]
     Dosage: 400MG X 2 Q.HS.

REACTIONS (1)
  - GRANULOCYTOPENIA [None]
